FAERS Safety Report 24324480 (Version 2)
Quarter: 2024Q3

REPORT INFORMATION
  Report Type: Spontaneous
  Country: US (occurrence: US)
  Receive Date: 20240916
  Receipt Date: 20240924
  Transmission Date: 20241016
  Serious: No
  Sender: SANOFI AVENTIS
  Company Number: US-SA-2024SA266254

PATIENT
  Sex: Female

DRUGS (18)
  1. DUPIXENT [Suspect]
     Active Substance: DUPILUMAB
     Indication: Eosinophilic oesophagitis
     Dosage: 300 MG, QW
     Route: 058
  2. AMITRIPTYLINE [Concomitant]
     Active Substance: AMITRIPTYLINE
     Dosage: UNK
  3. ARIPIPRAZOLE [Concomitant]
     Active Substance: ARIPIPRAZOLE
     Dosage: UNK
  4. DESVENLAFAXINE [Concomitant]
     Active Substance: DESVENLAFAXINE
     Dosage: UNK
  5. EPINEPHRINE [Concomitant]
     Active Substance: EPINEPHRINE
     Dosage: UNK
  6. ESTRADIOL [Concomitant]
     Active Substance: ESTRADIOL
     Dosage: UNK
  7. FLUDROCORTISONE [Concomitant]
     Active Substance: FLUDROCORTISONE
     Dosage: UNK
  8. FUROSEMIDE [Concomitant]
     Active Substance: FUROSEMIDE
     Dosage: UNK
  9. GABAPENTIN [Concomitant]
     Active Substance: GABAPENTIN
     Dosage: UNK
  10. HYDROCODONE [Concomitant]
     Active Substance: HYDROCODONE
     Dosage: UNK
  11. LEVOCETIRIZINE [Concomitant]
     Active Substance: LEVOCETIRIZINE
     Dosage: UNK
  12. MODAFINIL [Concomitant]
     Active Substance: MODAFINIL
     Dosage: UNK
  13. ONDANSETRON [Concomitant]
     Active Substance: ONDANSETRON
     Dosage: UNK
  14. PANTOPRAZOLE [Concomitant]
     Active Substance: PANTOPRAZOLE
     Dosage: UNK
  15. POTASSIUM CHLORIDE [Concomitant]
     Active Substance: POTASSIUM CHLORIDE
     Dosage: UNK
  16. ROPINIROLE HYDROCHLORIDE [Concomitant]
     Active Substance: ROPINIROLE HYDROCHLORIDE
     Dosage: UNK
  17. SUMATRIPTAN [Concomitant]
     Active Substance: SUMATRIPTAN\SUMATRIPTAN SUCCINATE
     Dosage: UNK
  18. VILAZODONE HYDROCHLORIDE [Concomitant]
     Active Substance: VILAZODONE HYDROCHLORIDE

REACTIONS (1)
  - Respiration abnormal [Recovered/Resolved]
